FAERS Safety Report 13446126 (Version 1)
Quarter: 2017Q2

REPORT INFORMATION
  Report Type: Spontaneous
  Country: US (occurrence: US)
  Receive Date: 20170417
  Receipt Date: 20170417
  Transmission Date: 20170830
  Serious: No
  Sender: FDA-Public Use
  Company Number: US-ACCORD-042896

PATIENT
  Age: 78 Year
  Sex: Female
  Weight: 74.84 kg

DRUGS (1)
  1. SIMVASTATIN ACCORD [Suspect]
     Active Substance: SIMVASTATIN
     Indication: BLOOD CHOLESTEROL
     Dosage: DOSE AND FREQUENCY: 1/2 TABLET QD (ONCE A DAY), STRENGTH: 40 MG
     Route: 048
     Dates: end: 20160727

REACTIONS (1)
  - Urine odour abnormal [Recovering/Resolving]

NARRATIVE: CASE EVENT DATE: 20160501
